FAERS Safety Report 17187818 (Version 8)
Quarter: 2023Q2

REPORT INFORMATION
  Report Type: Spontaneous
  Country: PK (occurrence: PK)
  Receive Date: 20191221
  Receipt Date: 20230602
  Transmission Date: 20230722
  Serious: Yes (Hospitalization, Other)
  Sender: FDA-Public Use
  Company Number: PK-PFIZER INC-2019541849

PATIENT
  Age: 35 Year
  Sex: Female
  Weight: 72 kg

DRUGS (20)
  1. ENBREL [Suspect]
     Active Substance: ETANERCEPT
     Indication: Product used for unknown indication
     Dosage: 50 MG, WEEKLY
     Route: 058
     Dates: start: 201912
  2. ENBREL [Suspect]
     Active Substance: ETANERCEPT
     Dosage: 50 MG, AFTER EVERY TWO WEEKS
     Route: 058
  3. ENBREL [Suspect]
     Active Substance: ETANERCEPT
     Dosage: 50 MG, AFTER EVERY TWO WEEKS
     Route: 058
  4. ASPIRIN [Concomitant]
     Active Substance: ASPIRIN
     Dosage: UNK
  5. TRYPTAL [Concomitant]
     Dosage: 25 MG, UNK
  6. NEXIUM [Concomitant]
     Active Substance: ESOMEPRAZOLE MAGNESIUM
     Dosage: UNK
  7. FOLIC ACID [Concomitant]
     Active Substance: FOLIC ACID
     Dosage: TAKE 2 TABLETS ON EVERY THURSDAY
  8. FOLIC ACID [Concomitant]
     Active Substance: FOLIC ACID
     Dosage: 5 MG (FOR 3 MONTHS, TAKE DAILY EXCEPT ON FRIDAY)
  9. FOLIC ACID [Concomitant]
     Active Substance: FOLIC ACID
     Dosage: 2 DF, WEEKLY (2 TABLETS ON EVERY THURSDAY)
  10. FOLIC ACID [Concomitant]
     Active Substance: FOLIC ACID
     Dosage: 2 DF, WEEKLY (2 TABLETS ON EVERY THURSDAY)
  11. FOLIC ACID [Concomitant]
     Active Substance: FOLIC ACID
     Dosage: 5 MG (FOR 3 MONTHS, TAKE DAILY EXCEPT ON FRIDAY)
  12. FOLIC ACID [Concomitant]
     Active Substance: FOLIC ACID
     Dosage: 5 MG, WEEKLY (1 TAB EVERY THURSDAY)
  13. METHOTREXATE [Concomitant]
     Active Substance: METHOTREXATE
     Dosage: 100 MG, WEEKLY
  14. METHOTREXATE [Concomitant]
     Active Substance: METHOTREXATE
     Dosage: 10 MG, WEEKLY (ONE TABLET ON EVERY FRIDAY)
  15. METHOTREXATE [Concomitant]
     Active Substance: METHOTREXATE
     Dosage: 2 DF, WEEKLY (2.5 MG 2 TABS EVERY FRIDAY)
  16. DELTACORTRIL [PREDNISOLONE ACETATE] [Concomitant]
     Dosage: 5 MG, DAILY
  17. CELBEXX [Concomitant]
     Dosage: 200 MG, 2X/DAY
  18. Risek [Concomitant]
     Dosage: 20 MG, DAILY
  19. Risek [Concomitant]
     Dosage: 20 MG, DAILY
  20. CALDREE [Concomitant]
     Dosage: 1 DF, DAILY

REACTIONS (6)
  - Toe operation [Unknown]
  - Antiphospholipid syndrome [Unknown]
  - Joint swelling [Unknown]
  - Musculoskeletal stiffness [Unknown]
  - Cerebrovascular accident [Unknown]
  - Off label use [Unknown]
